FAERS Safety Report 17221778 (Version 3)
Quarter: 2020Q2

REPORT INFORMATION
  Report Type: Spontaneous
  Country: JP (occurrence: JP)
  Receive Date: 20200101
  Receipt Date: 20200524
  Transmission Date: 20200713
  Serious: Yes (Hospitalization)
  Sender: FDA-Public Use
  Company Number: JP-ACTELION-A-CH2015-128725

PATIENT
  Age: 4 Month
  Sex: Male

DRUGS (5)
  1. BRAZAVES [Suspect]
     Active Substance: MIGLUSTAT
     Dosage: 100 MG, OD
     Route: 048
     Dates: start: 20150216, end: 20161107
  2. URSO [Concomitant]
     Active Substance: URSODIOL
  3. OXYGEN. [Concomitant]
     Active Substance: OXYGEN
  4. BRAZAVES [Suspect]
     Active Substance: MIGLUSTAT
     Indication: NIEMANN-PICK DISEASE
     Dosage: 100 MG, BID
     Route: 048
     Dates: start: 20161108
  5. VITAMEDIN [Concomitant]
     Active Substance: CYANOCOBALAMIN\PYRIDOXINE HYDROCHLORIDE\THIAMINE

REACTIONS (2)
  - Chronic myeloid leukaemia [Not Recovered/Not Resolved]
  - Diarrhoea [Not Recovered/Not Resolved]

NARRATIVE: CASE EVENT DATE: 20150216
